FAERS Safety Report 10240286 (Version 1)
Quarter: 2014Q2

REPORT INFORMATION
  Report Type: Spontaneous
  Country: US (occurrence: US)
  Receive Date: 20140617
  Receipt Date: 20140617
  Transmission Date: 20141212
  Serious: No
  Sender: FDA-Public Use
  Company Number: PHHY2014US073260

PATIENT
  Age: 74 Year
  Sex: Male

DRUGS (11)
  1. ALISKIREN [Suspect]
     Indication: HYPERTENSION
     Dosage: 150 MG, EVERY DAY
  2. VALSARTAN [Suspect]
     Indication: HYPERTENSION
     Dosage: 160 MG, BID
  3. CARVEDILOL [Suspect]
     Indication: HYPERTENSION
     Dosage: 25 MG, BID
  4. CLONIDINE [Suspect]
     Indication: HYPERTENSION
     Dosage: 0.3 MG, TID
  5. MINOXIDIL [Suspect]
     Indication: HYPERTENSION
     Dosage: 2.5 MG, BID
  6. FUROSEMIDE [Suspect]
     Dosage: 80 MG IN AM, 40 MG PM
  7. OMEPRAZOLE [Concomitant]
  8. ASPIRIN [Concomitant]
  9. CLOPIDOGREL [Concomitant]
  10. VITAMIN D2 [Concomitant]
  11. DARBEPOETIN ALFA [Concomitant]
     Route: 058

REACTIONS (1)
  - Drug ineffective [Unknown]
